FAERS Safety Report 11420682 (Version 1)
Quarter: 2015Q3

REPORT INFORMATION
  Report Type: Spontaneous
  Country: US (occurrence: US)
  Receive Date: 20150826
  Receipt Date: 20150826
  Transmission Date: 20151125
  Serious: No
  Sender: FDA-Public Use
  Company Number: US-009507513-1508USA009362

PATIENT
  Age: 23 Year
  Sex: Female
  Weight: 77.98 kg

DRUGS (1)
  1. NEXPLANON [Suspect]
     Active Substance: ETONOGESTREL
     Indication: CONTRACEPTION
     Dosage: 1 IMPLANT/3 YEARS
     Route: 059
     Dates: start: 20141208

REACTIONS (5)
  - Menstruation delayed [Recovered/Resolved]
  - Menstruation delayed [Recovered/Resolved]
  - Abdominal pain [Unknown]
  - Metrorrhagia [Recovered/Resolved]
  - Menstruation irregular [Unknown]

NARRATIVE: CASE EVENT DATE: 201412
